FAERS Safety Report 8301895-1 (Version None)
Quarter: 2012Q2

REPORT INFORMATION
  Report Type: 
  Country: None (occurrence: None)
  Receive Date: 20120418
  Receipt Date: 20120402
  Transmission Date: 20120825
  Serious: Yes (Other)
  Sender: FDA-Public Use
  Company Number: JPI-P-020437

PATIENT
  Age: 48 Year
  Sex: Female
  Weight: 64.8644 kg

DRUGS (10)
  1. ESOMEPRAZOLE MAGNESIUM [Concomitant]
  2. XYREM [Suspect]
     Indication: DYSSOMNIA
     Dosage: 4.5 GM (2.25 GM,2  IN 1 D),ORAL, (3 GM FIRST DOSE/2.25 GRAM SECOND DOSE),ORAL
     Route: 048
     Dates: start: 20120316
  3. XYREM [Suspect]
     Indication: SOMNOLENCE
     Dosage: 4.5 GM (2.25 GM,2  IN 1 D),ORAL, (3 GM FIRST DOSE/2.25 GRAM SECOND DOSE),ORAL
     Route: 048
     Dates: start: 20120316
  4. XYREM [Suspect]
     Indication: FIBROMYALGIA
     Dosage: 4.5 GM (2.25 GM,2  IN 1 D),ORAL, (3 GM FIRST DOSE/2.25 GRAM SECOND DOSE),ORAL
     Route: 048
     Dates: start: 20120316
  5. XYREM [Suspect]
     Indication: DYSSOMNIA
     Dosage: 4.5 GM (2.25 GM,2  IN 1 D),ORAL, (3 GM FIRST DOSE/2.25 GRAM SECOND DOSE),ORAL
     Route: 048
     Dates: start: 20120301, end: 20120301
  6. XYREM [Suspect]
     Indication: SOMNOLENCE
     Dosage: 4.5 GM (2.25 GM,2  IN 1 D),ORAL, (3 GM FIRST DOSE/2.25 GRAM SECOND DOSE),ORAL
     Route: 048
     Dates: start: 20120301, end: 20120301
  7. XYREM [Suspect]
     Indication: FIBROMYALGIA
     Dosage: 4.5 GM (2.25 GM,2  IN 1 D),ORAL, (3 GM FIRST DOSE/2.25 GRAM SECOND DOSE),ORAL
     Route: 048
     Dates: start: 20120301, end: 20120301
  8. VARENICLINE TARTRATE [Concomitant]
  9. WATER PILL [Concomitant]
  10. HYDROXYCHLOROQUINE SULFATE [Concomitant]

REACTIONS (8)
  - PLEURISY [None]
  - SINUSITIS [None]
  - EAR INFECTION [None]
  - DECREASED APPETITE [None]
  - SOMNOLENCE [None]
  - RENAL IMPAIRMENT [None]
  - WEIGHT DECREASED [None]
  - HEPATOMEGALY [None]
